FAERS Safety Report 9530764 (Version 3)
Quarter: 2013Q4

REPORT INFORMATION
  Report Type: Spontaneous
  Country: CA (occurrence: CA)
  Receive Date: 20130918
  Receipt Date: 20131014
  Transmission Date: 20140711
  Serious: Yes (Other)
  Sender: FDA-Public Use
  Company Number: CA-AMGEN-CANSP2013061425

PATIENT
  Age: 70 Year
  Sex: Female
  Weight: 51.25 kg

DRUGS (3)
  1. PROLIA [Suspect]
     Indication: OSTEOPOROSIS POSTMENOPAUSAL
     Dosage: UNK UNK, Q6MO
     Route: 058
     Dates: start: 20120926
  2. LIPITOR [Concomitant]
     Indication: LIVER DISORDER
     Dosage: 10 MG, QD
     Route: 048
  3. PREVACID [Concomitant]
     Indication: GASTROOESOPHAGEAL REFLUX DISEASE
     Dosage: 30 MG, BID
     Route: 048

REACTIONS (3)
  - Jaw fracture [Unknown]
  - Tooth disorder [Unknown]
  - Toothache [Unknown]
